FAERS Safety Report 16135991 (Version 2)
Quarter: 2019Q1

REPORT INFORMATION
  Report Type: Spontaneous
  Country: US (occurrence: US)
  Receive Date: 20190329
  Receipt Date: 20190329
  Transmission Date: 20190418
  Serious: Yes (Other)
  Sender: FDA-Public Use
  Company Number: US-SHIRE-US201910276

PATIENT
  Sex: Female

DRUGS (1)
  1. GATTEX [Suspect]
     Active Substance: TEDUGLUTIDE\WATER
     Indication: CROHN^S DISEASE
     Dosage: 0.325 MILLIGRAM, 1X/DAY:QD
     Route: 065

REACTIONS (5)
  - Macular degeneration [Unknown]
  - Diarrhoea [Unknown]
  - Vomiting [Unknown]
  - Intestinal obstruction [Unknown]
  - Influenza [Unknown]
